FAERS Safety Report 8070376-5 (Version None)
Quarter: 2012Q1

REPORT INFORMATION
  Report Type: 
  Country: None (occurrence: None)
  Receive Date: 20120125
  Receipt Date: 20120120
  Transmission Date: 20120608
  Serious: Yes (Other)
  Sender: FDA-Public Use
  Company Number: US-PFIZER INC-2011243616

PATIENT
  Sex: Female

DRUGS (2)
  1. LYRICA [Suspect]
     Dosage: 75 MG, 2X/DAY
     Route: 048
  2. NEURONTIN [Interacting]
     Dosage: UNK

REACTIONS (4)
  - DRUG INTERACTION [None]
  - IMPAIRED DRIVING ABILITY [None]
  - SOMNOLENCE [None]
  - FATIGUE [None]
